FAERS Safety Report 21859956 (Version 1)
Quarter: 2023Q1

REPORT INFORMATION
  Report Type: Other
  Country: CA (occurrence: CA)
  Receive Date: 20230113
  Receipt Date: 20230113
  Transmission Date: 20230418
  Serious: Yes (Death, Other)
  Sender: FDA-Public Use
  Company Number: CA-PFIZER INC-202300014336

PATIENT
  Age: 37 Year
  Sex: Male

DRUGS (2)
  1. CARBOPLATIN [Suspect]
     Active Substance: CARBOPLATIN
     Indication: Lung neoplasm malignant
     Dosage: UNK, CYCLIC
     Route: 065
  2. PEMETREXED [Suspect]
     Active Substance: PEMETREXED
     Indication: Lung neoplasm malignant
     Dosage: UNK, CYCLIC
     Route: 065

REACTIONS (6)
  - Dyspnoea [Fatal]
  - Hypoxia [Fatal]
  - Pain [Fatal]
  - Pancytopenia [Fatal]
  - Pulmonary embolism [Fatal]
  - Thrombocytopenia [Fatal]
